FAERS Safety Report 6449267-9 (Version None)
Quarter: 2009Q4

REPORT INFORMATION
  Report Type: 
  Country: None (occurrence: None)
  Receive Date: 20091120
  Receipt Date: 20091118
  Transmission Date: 20100525
  Serious: No
  Sender: FDA-Public Use
  Company Number: US-B.I. PHARMACEUTICALS,INC./RIDGEFIELD-2009-BP-13440BP

PATIENT
  Sex: Female

DRUGS (8)
  1. SPIRIVA [Suspect]
     Indication: CHRONIC OBSTRUCTIVE PULMONARY DISEASE
     Dosage: 18 MCG
     Route: 055
     Dates: start: 20091106, end: 20091113
  2. TAMBOCOR [Concomitant]
     Indication: SUPRAVENTRICULAR TACHYCARDIA
  3. CARDIZEM [Concomitant]
     Indication: HYPERTENSION
  4. MAXZIDE [Concomitant]
     Indication: HYPERTENSION
  5. TAPAZOLE [Concomitant]
     Indication: HYPERTHYROIDISM
  6. PROTONIX [Concomitant]
     Indication: HIATUS HERNIA
  7. FLOVENT [Concomitant]
     Indication: CHRONIC OBSTRUCTIVE PULMONARY DISEASE
  8. SEREVENT [Concomitant]
     Indication: CHRONIC OBSTRUCTIVE PULMONARY DISEASE

REACTIONS (2)
  - CHEST PAIN [None]
  - PARAESTHESIA [None]
